FAERS Safety Report 5532670-9 (Version None)
Quarter: 2007Q4

REPORT INFORMATION
  Report Type: 
  Country: None (occurrence: None)
  Receive Date: 20071203
  Receipt Date: 20071127
  Transmission Date: 20080405
  Serious: No
  Sender: FDA-Public Use
  Company Number: JP-MERCK-0711USA02361

PATIENT
  Age: 51 Year
  Sex: Male
  Weight: 58 kg

DRUGS (1)
  1. PROPECIA [Suspect]
     Indication: MALE PATTERN BALDNESS
     Route: 048
     Dates: start: 20071025, end: 20071025

REACTIONS (1)
  - TACHYCARDIA PAROXYSMAL [None]
